FAERS Safety Report 13562757 (Version 2)
Quarter: 2017Q2

REPORT INFORMATION
  Report Type: Report from Study
  Country: CZ (occurrence: CZ)
  Receive Date: 20170519
  Receipt Date: 20170601
  Transmission Date: 20170830
  Serious: Yes (Death, Hospitalization)
  Sender: FDA-Public Use
  Company Number: CZ-ASTELLAS-2017US018629

PATIENT
  Age: 66 Year
  Sex: Male

DRUGS (20)
  1. TOLUCOMBI [Concomitant]
     Indication: HYPERTENSION
     Dosage: 80MG/12.5MG, UNKNOWN FREQ.
     Route: 048
     Dates: start: 20160406
  2. ZOFRAN [Concomitant]
     Active Substance: ONDANSETRON HYDROCHLORIDE
     Indication: CHEMOTHERAPY
     Dosage: 8 MG, EVERY 3 WEEKS (ON THE DAY OF CHEMOTHERAPY)
     Route: 042
     Dates: start: 20160719
  3. OXYCODON [Concomitant]
     Active Substance: OXYCODONE
     Indication: BONE PAIN
     Dosage: 40 MG, ONCE DAILY (20MG 1-0-1, 1-1-1 OR 2-0-2, 2-2-2)
     Route: 048
     Dates: start: 20170321
  4. CABAZITAXEL [Concomitant]
     Active Substance: CABAZITAXEL
     Indication: PROSTATE CANCER
     Route: 065
     Dates: start: 20170404
  5. OXYCODON [Concomitant]
     Active Substance: OXYCODONE
     Indication: SPINAL PAIN
  6. DOCETAXEL. [Suspect]
     Active Substance: DOCETAXEL
     Indication: PROSTATE CANCER
     Route: 042
     Dates: start: 20160719, end: 20170124
  7. MORPHIN                            /00036302/ [Concomitant]
     Indication: SPINAL PAIN
  8. ALMIRAL                            /00372302/ [Concomitant]
     Indication: SPINAL PAIN
  9. MORPHIN                            /00036302/ [Concomitant]
     Indication: BONE PAIN
     Route: 058
     Dates: start: 20170307, end: 20170328
  10. PREDNISOLONE. [Suspect]
     Active Substance: PREDNISOLONE
     Indication: CHEMOTHERAPY
     Route: 048
     Dates: start: 20160719, end: 20170504
  11. FORTECORTIN                        /00016001/ [Concomitant]
     Active Substance: DEXAMETHASONE
     Dosage: 16 MG, EVERY 3 WEEKS ( (ON THE DAY AND DAY AFTER CHEMOTHERAPY))
     Route: 048
     Dates: start: 20160719
  12. IBALGIN [Concomitant]
     Active Substance: IBUPROFEN
     Indication: BONE PAIN
     Route: 048
     Dates: start: 20170321
  13. IBALGIN [Concomitant]
     Active Substance: IBUPROFEN
     Indication: SPINAL PAIN
  14. HELICID                            /00661201/ [Concomitant]
     Indication: ULCER
     Route: 048
     Dates: start: 20170307
  15. ALMIRAL                            /00372302/ [Concomitant]
     Indication: BONE PAIN
     Route: 030
     Dates: start: 20170307, end: 20170328
  16. ENZALUTAMIDE [Suspect]
     Active Substance: ENZALUTAMIDE
     Indication: PROSTATE CANCER
     Route: 048
     Dates: start: 20160719, end: 20170404
  17. ENZALUTAMIDE [Suspect]
     Active Substance: ENZALUTAMIDE
     Indication: PROSTATE CANCER
     Route: 048
     Dates: start: 20150729, end: 20160718
  18. CALCICHEW [Concomitant]
     Active Substance: CALCIUM CARBONATE
     Indication: BONE DISORDER
     Dosage: 500MG/400IU, UNKNOWN FREQ.
     Route: 048
     Dates: start: 20160530
  19. FORTECORTIN                        /00016001/ [Concomitant]
     Active Substance: DEXAMETHASONE
     Indication: CHEMOTHERAPY
     Dosage: 8 MG, EVERY 3 WEEKS (ONE DAY BEFORE CHEMOTHERAPY)
     Route: 048
     Dates: start: 20160718
  20. INDOMETACIN [Concomitant]
     Active Substance: INDOMETHACIN
     Indication: PAIN
     Route: 054
     Dates: start: 20170322, end: 20170504

REACTIONS (1)
  - General physical health deterioration [Fatal]

NARRATIVE: CASE EVENT DATE: 20170425
